FAERS Safety Report 7355614-6 (Version None)
Quarter: 2011Q1

REPORT INFORMATION
  Report Type: 
  Country: None (occurrence: None)
  Receive Date: 20110316
  Receipt Date: 20110315
  Transmission Date: 20110831
  Serious: Yes (Disabling, Other)
  Sender: FDA-Public Use
  Company Number: DK-PURDUE-GBR-2010-0006693

PATIENT
  Sex: Male
  Weight: 73 kg

DRUGS (2)
  1. OXYCONTIN [Suspect]
     Indication: BACK PAIN
     Dosage: 10 MG, TID
     Route: 048
     Dates: start: 20090202, end: 20091022
  2. GABAPENTIN ACTAVIS [Concomitant]
     Indication: MUSCLE SPASMS
     Dosage: 300 MG, BID
     Route: 048
     Dates: start: 20090318

REACTIONS (10)
  - AGGRESSION [None]
  - MUSCLE SPASTICITY [None]
  - URTICARIA [None]
  - THINKING ABNORMAL [None]
  - IRRITABILITY [None]
  - TINNITUS [None]
  - VISUAL IMPAIRMENT [None]
  - MUSCLE SPASMS [None]
  - COORDINATION ABNORMAL [None]
  - MEMORY IMPAIRMENT [None]
